FAERS Safety Report 8557497-5 (Version None)
Quarter: 2012Q3

REPORT INFORMATION
  Report Type: 
  Country: None (occurrence: None)
  Receive Date: 20120720
  Receipt Date: 20120705
  Transmission Date: 20120928
  Serious: Yes (Hospitalization)
  Sender: FDA-Public Use
  Company Number: 2012SGN00239

PATIENT
  Age: 35 Year
  Sex: Male
  Weight: 110.9 kg

DRUGS (8)
  1. MULTIVITAMINS (ASCORBIC ACID, ERGOCALCIFEROL, FOLIC ACID, NICTONAMIDE, [Concomitant]
  2. NAPROSYN [Concomitant]
  3. ANTISPASMODICS/ ANTICHOLINGERGICS [Concomitant]
  4. PROTONIX [Concomitant]
  5. ADCETRIS [Suspect]
     Indication: NON-HODGKIN'S LYMPHOMA
     Dosage: 1.8 MG/KG, Q12D
     Dates: start: 20120514, end: 20120514
  6. POTASSIUM CHLORIDE [Concomitant]
  7. IRON (IRON) [Concomitant]
  8. ACETAMINOPHEN [Concomitant]

REACTIONS (20)
  - SINUS TACHYCARDIA [None]
  - ATELECTASIS [None]
  - HYPOKALAEMIA [None]
  - ESCHERICHIA URINARY TRACT INFECTION [None]
  - HYPOVENTILATION [None]
  - PULMONARY OEDEMA [None]
  - NEUTROPHIL PERCENTAGE INCREASED [None]
  - HYPONATRAEMIA [None]
  - HYPOMAGNESAEMIA [None]
  - FATIGUE [None]
  - PYREXIA [None]
  - MALAISE [None]
  - DECREASED APPETITE [None]
  - HYPOPHAGIA [None]
  - HYPERGLYCAEMIA [None]
  - URINARY TRACT INFECTION [None]
  - URINE OUTPUT DECREASED [None]
  - DYSURIA [None]
  - SUPRAPUBIC PAIN [None]
  - WHITE BLOOD CELL COUNT INCREASED [None]
